FAERS Safety Report 9719324 (Version 2)
Quarter: 2013Q4

REPORT INFORMATION
  Report Type: Report from Study
  Country: PH (occurrence: PH)
  Receive Date: 20131127
  Receipt Date: 20131127
  Transmission Date: 20140711
  Serious: Yes (Death, Hospitalization)
  Sender: FDA-Public Use
  Company Number: PHHY2013PH111063

PATIENT
  Age: 59 Year
  Sex: Female

DRUGS (3)
  1. GLIVEC [Suspect]
     Dosage: 600 MG, DAILY
     Route: 048
     Dates: start: 20130301, end: 20130601
  2. GLIVEC [Suspect]
     Dosage: 400 MG, DAILY
     Route: 048
     Dates: start: 20130601, end: 20130926
  3. GLIVEC [Suspect]
     Dosage: 600 MG, DAILY
     Dates: start: 20131004, end: 20131008

REACTIONS (2)
  - Death [Fatal]
  - Full blood count decreased [Unknown]
